FAERS Safety Report 8698069 (Version 2)
Quarter: 2013Q4

REPORT INFORMATION
  Report Type: Spontaneous
  Country: US (occurrence: US)
  Receive Date: 20120802
  Receipt Date: 20131106
  Transmission Date: 20140711
  Serious: Yes (Hospitalization)
  Sender: FDA-Public Use
  Company Number: US-MSD-1207USA010706

PATIENT
  Age: 76 Year
  Sex: Male

DRUGS (5)
  1. ZOCOR [Suspect]
     Route: 048
  2. DICLOFENAC SANDOZ [Suspect]
     Route: 048
  3. GLUCOSAMINE [Concomitant]
  4. SILDENAFIL CITRATE [Concomitant]
  5. CINNARIZINE [Concomitant]

REACTIONS (5)
  - Blood creatinine increased [Unknown]
  - Blood creatine phosphokinase increased [Unknown]
  - Myopathy [Unknown]
  - Renal failure acute [Unknown]
  - Rhabdomyolysis [Unknown]
